FAERS Safety Report 18341311 (Version 3)
Quarter: 2021Q4

REPORT INFORMATION
  Report Type: Report from Study
  Country: US (occurrence: US)
  Receive Date: 20201003
  Receipt Date: 20211006
  Transmission Date: 20220303
  Serious: No
  Sender: FDA-Public Use
  Company Number: US-EUSA PHARMA (NETHERLANDS) B.V.-2020US000224

PATIENT

DRUGS (16)
  1. SILTUXIMAB [Suspect]
     Active Substance: SILTUXIMAB
     Indication: Castleman^s disease
     Dosage: 11 MG/KG 3 WEEKS
     Route: 065
     Dates: start: 20190206
  2. SILTUXIMAB [Suspect]
     Active Substance: SILTUXIMAB
     Dosage: 11 MG/KG
     Route: 065
     Dates: start: 20190222
  3. SILTUXIMAB [Suspect]
     Active Substance: SILTUXIMAB
     Dosage: 11 MG/KG
     Route: 065
     Dates: start: 20190314
  4. SILTUXIMAB [Suspect]
     Active Substance: SILTUXIMAB
     Dosage: 11 MG/KG
     Route: 065
     Dates: start: 20190405
  5. SILTUXIMAB [Suspect]
     Active Substance: SILTUXIMAB
     Dosage: 11 MG/KG
     Route: 065
     Dates: start: 20190426
  6. SILTUXIMAB [Suspect]
     Active Substance: SILTUXIMAB
     Dosage: 11 MG/KG
     Route: 065
     Dates: start: 20190517
  7. SILTUXIMAB [Suspect]
     Active Substance: SILTUXIMAB
     Dosage: 11 MG/KG
     Route: 065
     Dates: start: 20190607
  8. SILTUXIMAB [Suspect]
     Active Substance: SILTUXIMAB
     Dosage: 11 MG/KG
     Route: 065
     Dates: start: 20190702
  9. SILTUXIMAB [Suspect]
     Active Substance: SILTUXIMAB
     Dosage: 11 MG/KG
     Route: 065
     Dates: start: 20190723
  10. SILTUXIMAB [Suspect]
     Active Substance: SILTUXIMAB
     Dosage: 11 MG/KG
     Route: 065
     Dates: start: 20190813
  11. SILTUXIMAB [Suspect]
     Active Substance: SILTUXIMAB
     Dosage: 11 MG/KG
     Route: 065
     Dates: start: 20190909
  12. SILTUXIMAB [Suspect]
     Active Substance: SILTUXIMAB
     Dosage: 11 MG/KG
     Route: 065
     Dates: start: 20190930
  13. SILTUXIMAB [Suspect]
     Active Substance: SILTUXIMAB
     Dosage: 11 MG/KG
     Route: 065
     Dates: start: 20191021
  14. SILTUXIMAB [Suspect]
     Active Substance: SILTUXIMAB
     Dosage: 11 MG/KG
     Route: 065
     Dates: start: 20191111
  15. SILTUXIMAB [Suspect]
     Active Substance: SILTUXIMAB
     Dosage: 11 MG/KG
     Route: 065
     Dates: start: 20191202
  16. SILTUXIMAB [Suspect]
     Active Substance: SILTUXIMAB
     Dosage: UNK

REACTIONS (2)
  - Dysgeusia [Recovered/Resolved]
  - Headache [Recovered/Resolved]

NARRATIVE: CASE EVENT DATE: 20190524
